FAERS Safety Report 6226142-6 (Version None)
Quarter: 2009Q2

REPORT INFORMATION
  Report Type: 
  Country: None (occurrence: None)
  Receive Date: 20090612
  Receipt Date: 20090604
  Transmission Date: 20091009
  Serious: Yes (Other)
  Sender: FDA-Public Use
  Company Number: US-PFIZER INC-2006032591

PATIENT
  Sex: Female
  Weight: 73.02 kg

DRUGS (6)
  1. PROVERA [Suspect]
     Indication: HORMONE REPLACEMENT THERAPY
     Dosage: 2.5 MG, UNK
     Route: 048
     Dates: start: 19800101, end: 19900101
  2. PROVERA [Suspect]
     Dosage: 2.5 MG, UNK
     Route: 048
     Dates: start: 19940101
  3. MEDROXYPROGESTERONE AND MEDROXYPROGESTERONE ACETATE [Suspect]
     Indication: HORMONE REPLACEMENT THERAPY
     Dosage: 2.5 MG, UNK
     Route: 048
     Dates: start: 19970101, end: 20020101
  4. PREMARIN [Suspect]
     Indication: HORMONE REPLACEMENT THERAPY
     Dosage: 0.625 MG, UNK
     Dates: start: 19800101, end: 19900101
  5. PREMARIN [Suspect]
     Dosage: 0.625 MG, UNK
     Dates: start: 19950101, end: 20040101
  6. PREMPRO [Suspect]
     Indication: HORMONE REPLACEMENT THERAPY
     Dosage: 0.625/5MG, UNK
     Dates: start: 19990101

REACTIONS (1)
  - BREAST CANCER FEMALE [None]
